FAERS Safety Report 21017483 (Version 2)
Quarter: 2022Q2

REPORT INFORMATION
  Report Type: Spontaneous
  Country: US (occurrence: US)
  Receive Date: 20220628
  Receipt Date: 20220630
  Transmission Date: 20220721
  Serious: Yes (Disabling)
  Sender: FDA-Public Use
  Company Number: US-PFIZER INC-202200893618

PATIENT
  Age: 83 Year
  Sex: Male
  Weight: 77.11 kg

DRUGS (2)
  1. INLYTA [Suspect]
     Active Substance: AXITINIB
     Indication: Metastatic renal cell carcinoma
     Dosage: 3 MG, 2X/DAY
     Route: 048
     Dates: start: 2019
  2. KEYTRUDA [Suspect]
     Active Substance: PEMBROLIZUMAB
     Indication: Metastatic renal cell carcinoma
     Dosage: UNK
     Dates: start: 2019

REACTIONS (9)
  - Muscular weakness [Not Recovered/Not Resolved]
  - Arthropathy [Unknown]
  - Joint range of motion decreased [Unknown]
  - Nerve compression [Unknown]
  - Radiculopathy [Unknown]
  - Liver function test increased [Unknown]
  - Myopathy [Recovered/Resolved]
  - Decreased appetite [Unknown]
  - Weight decreased [Unknown]

NARRATIVE: CASE EVENT DATE: 20200101
